FAERS Safety Report 15621290 (Version 2)
Quarter: 2019Q1

REPORT INFORMATION
  Report Type: Spontaneous
  Country: US (occurrence: US)
  Receive Date: 20181115
  Receipt Date: 20190213
  Transmission Date: 20190417
  Serious: Yes (Life-Threatening, Other)
  Sender: FDA-Public Use
  Company Number: US-SA-2018SA308173

PATIENT
  Age: 40 Year
  Sex: Female
  Weight: 98.01 kg

DRUGS (1)
  1. ALEMTUZUMAB [Suspect]
     Active Substance: ALEMTUZUMAB
     Dosage: UNK
     Route: 041
     Dates: start: 201809, end: 201809

REACTIONS (19)
  - Cyanosis [Unknown]
  - Skin discolouration [Unknown]
  - Glomerular filtration rate decreased [Unknown]
  - Increased tendency to bruise [Unknown]
  - Stress urinary incontinence [Unknown]
  - Lymphocyte count decreased [Unknown]
  - Tooth disorder [Unknown]
  - Peripheral swelling [Unknown]
  - Fibrin D dimer increased [Unknown]
  - Blood pressure increased [Unknown]
  - Pain in extremity [Unknown]
  - Red blood cell sedimentation rate increased [Unknown]
  - Deep vein thrombosis [Unknown]
  - Lymphocyte percentage decreased [Unknown]
  - CD4 lymphocytes decreased [Unknown]
  - Monocyte percentage increased [Unknown]
  - Blood calcium decreased [Unknown]
  - Red cell distribution width increased [Unknown]
  - Fatigue [Unknown]

NARRATIVE: CASE EVENT DATE: 20181029
